FAERS Safety Report 11110013 (Version 2)
Quarter: 2015Q2

REPORT INFORMATION
  Report Type: Spontaneous
  Country: IT (occurrence: IT)
  Receive Date: 20150513
  Receipt Date: 20150612
  Transmission Date: 20150821
  Serious: Yes (Hospitalization)
  Sender: FDA-Public Use
  Company Number: IT-PFIZER INC-2015158474

PATIENT
  Age: 20 Year
  Sex: Female

DRUGS (2)
  1. XANAX [Suspect]
     Active Substance: ALPRAZOLAM
     Dosage: 16 ML (/4 OF BOTTLE), DAILY
     Route: 048
     Dates: start: 20150113, end: 20150113
  2. LEXOTAN [Suspect]
     Active Substance: BROMAZEPAM
     Dosage: 16 ML (40 GTT), DAILY
     Route: 048
     Dates: start: 20150113, end: 20150113

REACTIONS (2)
  - Suicide attempt [Recovering/Resolving]
  - Drug abuse [Recovering/Resolving]

NARRATIVE: CASE EVENT DATE: 20150113
